FAERS Safety Report 12701117 (Version 1)
Quarter: 2016Q3

REPORT INFORMATION
  Report Type: Spontaneous
  Country: CA (occurrence: CA)
  Receive Date: 20160831
  Receipt Date: 20160831
  Transmission Date: 20161109
  Serious: Yes (Other)
  Sender: FDA-Public Use
  Company Number: CA-CIPLA LTD.-2016US17720

PATIENT

DRUGS (2)
  1. BUPROPION. [Suspect]
     Active Substance: BUPROPION
     Dosage: 4500 MG/D, UNK
     Route: 042
  2. BUPROPION. [Suspect]
     Active Substance: BUPROPION
     Dosage: 4500 MG/D, UNK

REACTIONS (4)
  - Injection related reaction [Unknown]
  - Drug abuse [Unknown]
  - Delusion [Unknown]
  - Hallucination [Unknown]
